FAERS Safety Report 9891403 (Version 1)
Quarter: 2014Q1

REPORT INFORMATION
  Report Type: Spontaneous
  Country: US (occurrence: US)
  Receive Date: 20140212
  Receipt Date: 20140212
  Transmission Date: 20141002
  Serious: No
  Sender: FDA-Public Use
  Company Number: US-PFIZER INC-2014037494

PATIENT
  Sex: 0

DRUGS (5)
  1. DILANTIN-125 [Suspect]
     Dosage: UNK
  2. VENLAFAXINE HCL [Suspect]
     Dosage: UNK
  3. REMERON [Suspect]
     Dosage: UNK
  4. SEROQUEL [Suspect]
     Dosage: UNK
  5. GLUCOPHAGE [Suspect]
     Dosage: UNK

REACTIONS (1)
  - Drug screen false positive [Unknown]
